FAERS Safety Report 7374491-0 (Version None)
Quarter: 2011Q1

REPORT INFORMATION
  Report Type: 
  Country: None (occurrence: None)
  Receive Date: 20110325
  Receipt Date: 20110214
  Transmission Date: 20110831
  Serious: No
  Sender: FDA-Public Use
  Company Number: US-MYLANLABS-2011S1001160

PATIENT
  Age: 37 Year
  Sex: Female

DRUGS (10)
  1. MULTIVITAMIN [Concomitant]
     Dosage: B1 B12, C,  D
  2. MORPHINE SULFATE [Concomitant]
     Dosage: 1 - 2 DAILY
  3. FENTANYL-100 [Suspect]
     Indication: BACK PAIN
     Dosage: CHANGES PATCHES EVERY 2 DAYS
     Route: 062
  4. FENTANYL-100 [Suspect]
     Indication: COCCYDYNIA
     Dosage: CHANGES PATCHES EVERY 2 DAYS
     Route: 062
  5. FENTANYL-100 [Suspect]
     Dosage: CHANGES PATCHES EVERY 2 DAYS
     Route: 062
  6. CYMBALTA [Concomitant]
  7. FENTANYL-100 [Suspect]
     Indication: PELVIC FLOOR DYSSYNERGIA
     Dosage: CHANGES PATCHES EVERY 2 DAYS
     Route: 062
  8. FENTANYL-100 [Suspect]
     Indication: MUSCLE SPASMS
     Dosage: CHANGES PATCHES EVERY 2 DAYS
     Route: 062
  9. AMBIEN [Concomitant]
  10. ADDERALL 10 [Concomitant]
     Dosage: 1 - 3 DAILY

REACTIONS (1)
  - HYPERSENSITIVITY [None]
